FAERS Safety Report 10216461 (Version 1)
Quarter: 2014Q2

REPORT INFORMATION
  Report Type: Spontaneous
  Country: IN (occurrence: IN)
  Receive Date: 20140604
  Receipt Date: 20140604
  Transmission Date: 20141212
  Serious: Yes (Hospitalization, Other)
  Sender: FDA-Public Use
  Company Number: IN-ACTAVIS-2014-11895

PATIENT
  Age: 8 Year
  Sex: 0

DRUGS (1)
  1. CARBAMAZEPINE (UNKNOWN) [Suspect]
     Indication: IDIOPATHIC GENERALISED EPILEPSY
     Dosage: 15 MG/KG, DAILY
     Route: 065

REACTIONS (2)
  - Ventricular extrasystoles [Recovered/Resolved]
  - Syncope [Recovered/Resolved]
